FAERS Safety Report 14818326 (Version 4)
Quarter: 2018Q4

REPORT INFORMATION
  Report Type: Report from Study
  Country: US (occurrence: US)
  Receive Date: 20180427
  Receipt Date: 20181123
  Transmission Date: 20190204
  Serious: No
  Sender: FDA-Public Use
  Company Number: PHHY2018US068648

PATIENT
  Age: 62 Year
  Sex: Female

DRUGS (1)
  1. GILENYA [Suspect]
     Active Substance: FINGOLIMOD HYDROCHLORIDE
     Indication: MULTIPLE SCLEROSIS
     Dosage: UNK, QD
     Route: 048

REACTIONS (14)
  - Blood alkaline phosphatase increased [Unknown]
  - Seborrhoeic keratosis [Unknown]
  - White blood cell count decreased [Unknown]
  - Actinic keratosis [Unknown]
  - Alopecia areata [Unknown]
  - Alanine aminotransferase increased [Unknown]
  - Ephelides [Unknown]
  - Aspartate aminotransferase increased [Unknown]
  - Lymphocyte count decreased [Unknown]
  - Dysphonia [Recovered/Resolved]
  - Blood bilirubin increased [Unknown]
  - Melanocytic naevus [Unknown]
  - Vocal cord inflammation [Unknown]
  - Rash [Unknown]

NARRATIVE: CASE EVENT DATE: 20171127
